FAERS Safety Report 10578820 (Version 2)
Quarter: 2014Q4

REPORT INFORMATION
  Report Type: Spontaneous
  Country: JP (occurrence: JP)
  Receive Date: 20141112
  Receipt Date: 20141112
  Transmission Date: 20150529
  Serious: Yes (Death)
  Sender: FDA-Public Use
  Company Number: PHHY2014JP109595

PATIENT

DRUGS (4)
  1. EXJADE [Suspect]
     Active Substance: DEFERASIROX
     Dosage: 1500 MG, UNK
     Route: 048
  2. EXJADE [Suspect]
     Active Substance: DEFERASIROX
     Indication: IRON OVERLOAD
     Dosage: 750 MG, UNK
     Route: 048
     Dates: start: 201305
  3. EXJADE [Suspect]
     Active Substance: DEFERASIROX
     Dosage: 1250 MG, UNK
     Route: 048
  4. EXJADE [Suspect]
     Active Substance: DEFERASIROX
     Dosage: 750 MG, UNK
     Route: 048

REACTIONS (3)
  - Disseminated intravascular coagulation [Fatal]
  - Oedema [Unknown]
  - Infection [Recovered/Resolved]

NARRATIVE: CASE EVENT DATE: 201401
